FAERS Safety Report 7860658-1 (Version None)
Quarter: 2011Q4

REPORT INFORMATION
  Report Type: 
  Country: None (occurrence: None)
  Receive Date: 20111027
  Receipt Date: 20111013
  Transmission Date: 20120403
  Serious: Yes (Other)
  Sender: FDA-Public Use
  Company Number: JP-WATSON-2011-17226

PATIENT
  Age: 63 Year
  Sex: Male

DRUGS (2)
  1. NEDAPLATIN [Suspect]
     Indication: SQUAMOUS CELL CARCINOMA
  2. FLUOROURACIL [Suspect]
     Indication: SQUAMOUS CELL CARCINOMA
     Dosage: 600 MG/MM

REACTIONS (1)
  - SARCOMA [None]
